FAERS Safety Report 7183253-9 (Version None)
Quarter: 2010Q4

REPORT INFORMATION
  Report Type: 
  Country: None (occurrence: None)
  Receive Date: 20101222
  Receipt Date: 20100920
  Transmission Date: 20110411
  Serious: No
  Sender: FDA-Public Use
  Company Number: A0856500A

PATIENT
  Age: 57 Year
  Sex: Female

DRUGS (3)
  1. FLUTICASONE PROPIONATE [Suspect]
     Indication: MULTIPLE ALLERGIES
     Dosage: 2SPR PER DAY
     Route: 045
  2. ALLEGRA [Concomitant]
  3. BENADRYL [Concomitant]

REACTIONS (3)
  - DRUG INEFFECTIVE [None]
  - NASAL CONGESTION [None]
  - PRODUCT QUALITY ISSUE [None]
